FAERS Safety Report 9228157 (Version 2)
Quarter: 2013Q4

REPORT INFORMATION
  Report Type: Spontaneous
  Country: US (occurrence: US)
  Receive Date: 20130412
  Receipt Date: 20131008
  Transmission Date: 20140711
  Serious: Yes (Hospitalization, Other)
  Sender: FDA-Public Use
  Company Number: US-BAYER-2013-045434

PATIENT
  Age: 28 Year
  Sex: Female
  Weight: 69.39 kg

DRUGS (8)
  1. YASMIN [Suspect]
     Dosage: UNK
     Dates: start: 200311, end: 20040521
  2. LEXAPRO [Concomitant]
     Dosage: UNK
     Route: 048
     Dates: start: 20040401
  3. SYNTHROID [Concomitant]
     Dosage: 50 MCG
     Route: 048
     Dates: start: 20040401, end: 200405
  4. IBUPROFEN [Concomitant]
     Dosage: 800
     Route: 048
     Dates: start: 20040517
  5. LORTAB [Concomitant]
     Indication: MUSCLE STRAIN
     Dosage: UNK
     Route: 048
     Dates: start: 20040527
  6. MOTRIN [Concomitant]
     Indication: MUSCLE STRAIN
     Dosage: UNK
     Route: 048
     Dates: start: 200405
  7. FLEXERIL [Concomitant]
     Indication: MUSCLE STRAIN
     Dosage: UNK
     Route: 048
     Dates: start: 200405
  8. NEXIUM [Concomitant]

REACTIONS (14)
  - Deep vein thrombosis [None]
  - Pelvic venous thrombosis [Recovered/Resolved]
  - Deep vein thrombosis [Recovered/Resolved]
  - Injury [None]
  - Pain [None]
  - Emotional distress [None]
  - Abdominal pain [None]
  - General physical health deterioration [None]
  - Anxiety [None]
  - Thrombosis [None]
  - Pain [None]
  - Mental disorder [None]
  - Depressed mood [None]
  - Venous injury [None]
